APPROVED DRUG PRODUCT: MEDROXYPROGESTERONE ACETATE
Active Ingredient: MEDROXYPROGESTERONE ACETATE
Strength: 150MG/ML
Dosage Form/Route: INJECTABLE;INJECTION
Application: A212844 | Product #001 | TE Code: AB
Applicant: EUGIA PHARMA SPECIALITIES LTD
Approved: Aug 31, 2022 | RLD: No | RS: No | Type: RX